FAERS Safety Report 4437613-7 (Version None)
Quarter: 2004Q3

REPORT INFORMATION
  Report Type: 
  Country: None (occurrence: None)
  Receive Date: 20040827
  Receipt Date: 20040804
  Transmission Date: 20050211
  Serious: No
  Sender: FDA-Public Use
  Company Number: 2002GB00361

PATIENT
  Sex: Male

DRUGS (3)
  1. QUETIAPINE [Suspect]
     Indication: SCHIZOPHRENIA, PARANOID TYPE
     Dosage: 400 MG DAILY PO
     Route: 048
     Dates: start: 20001201
  2. QUETIAPINE [Suspect]
     Indication: SCHIZOPHRENIA, PARANOID TYPE
     Dosage: 600 MG DAILY PO
     Route: 048
  3. CLOMIPRAMINE HCL [Concomitant]

REACTIONS (2)
  - MANIA [None]
  - PARANOIA [None]
